FAERS Safety Report 9966933 (Version 1)
Quarter: 2014Q1

REPORT INFORMATION
  Report Type: Spontaneous
  Country: FR (occurrence: FR)
  Receive Date: 20140305
  Receipt Date: 20140305
  Transmission Date: 20141002
  Serious: No
  Sender: FDA-Public Use
  Company Number: FR-JNJFOC-20140214516

PATIENT
  Sex: 0

DRUGS (3)
  1. DUROGESIC [Suspect]
     Indication: RESTLESS LEGS SYNDROME
     Route: 062
  2. TRAMADOL [Suspect]
     Indication: PAIN
     Route: 065
  3. FENTANYL [Suspect]
     Indication: BREAKTHROUGH PAIN
     Route: 065

REACTIONS (3)
  - Off label use [Unknown]
  - Incorrect dose administered [Unknown]
  - Feeling abnormal [Unknown]
